FAERS Safety Report 4392611-7 (Version None)
Quarter: 2004Q3

REPORT INFORMATION
  Report Type: 
  Country: None (occurrence: None)
  Receive Date: 20040702
  Receipt Date: 20040322
  Transmission Date: 20050211
  Serious: Yes (Other)
  Sender: FDA-Public Use
  Company Number: 2004UW05514

PATIENT
  Age: 70 Year
  Sex: Female
  Weight: 83.9154 kg

DRUGS (4)
  1. CRESTOR [Suspect]
     Indication: BLOOD CHOLESTEROL INCREASED
     Dosage: 10 MG PO
     Route: 048
     Dates: start: 20040311
  2. METFORMIN [Concomitant]
  3. GLIPIZIDE [Concomitant]
  4. AVAPRO [Concomitant]

REACTIONS (3)
  - BREAST PAIN [None]
  - COUGH [None]
  - RHINORRHOEA [None]
